FAERS Safety Report 8106260-8 (Version None)
Quarter: 2012Q1

REPORT INFORMATION
  Report Type: 
  Country: None (occurrence: None)
  Receive Date: 20120130
  Receipt Date: 20120118
  Transmission Date: 20120608
  Serious: Yes (Other)
  Sender: FDA-Public Use
  Company Number: 2012AP000164

PATIENT
  Age: 57 Year
  Sex: Female

DRUGS (5)
  1. BEVACIZUMAB [Suspect]
     Indication: NON-SMALL CELL LUNG CANCER
  2. AMLODIPINE [Concomitant]
  3. PEMETREXED [Suspect]
     Indication: NON-SMALL CELL LUNG CANCER
     Dosage: 500 MG/M**2;
  4. LISINOPRIL [Suspect]
     Indication: HYPERTENSION
  5. PACLITAXEL [Concomitant]

REACTIONS (12)
  - HYPERTENSION [None]
  - RENAL TUBULAR DISORDER [None]
  - RENAL ARTERIOSCLEROSIS [None]
  - RENAL TUBULAR ATROPHY [None]
  - RENAL INJURY [None]
  - KIDNEY FIBROSIS [None]
  - NEPHROSCLEROSIS [None]
  - TUBULOINTERSTITIAL NEPHRITIS [None]
  - GLOMERULAR VASCULAR DISORDER [None]
  - BLOOD CREATININE INCREASED [None]
  - NEPHROPATHY TOXIC [None]
  - RENAL IMPAIRMENT [None]
